FAERS Safety Report 5279074-4 (Version None)
Quarter: 2007Q1

REPORT INFORMATION
  Report Type: 
  Country: None (occurrence: None)
  Receive Date: 20070328
  Receipt Date: 20060808
  Transmission Date: 20070707
  Serious: No
  Sender: FDA-Public Use
  Company Number: US-AMGEN-KDL189263

PATIENT
  Sex: Female

DRUGS (3)
  1. NEULASTA [Suspect]
     Indication: CHEMOTHERAPY
     Route: 065
     Dates: start: 20060301
  2. MEGESTROL ACETATE [Concomitant]
     Route: 065
  3. WELLBUTRIN [Concomitant]
     Route: 065
     Dates: start: 20050101

REACTIONS (3)
  - ARTHRALGIA [None]
  - PAIN [None]
  - PAIN IN EXTREMITY [None]
